FAERS Safety Report 8169553-4 (Version None)
Quarter: 2012Q1

REPORT INFORMATION
  Report Type: 
  Country: None (occurrence: None)
  Receive Date: 20120228
  Receipt Date: 20120223
  Transmission Date: 20120608
  Serious: Yes (Hospitalization)
  Sender: FDA-Public Use
  Company Number: IE-AMGEN-IRLSP2011053403

PATIENT
  Age: 43 Year
  Sex: Female

DRUGS (8)
  1. CYCLOPHOSPHAMIDE [Concomitant]
     Indication: ADJUVANT THERAPY
     Dosage: UNK
     Route: 042
     Dates: end: 20110801
  2. MOTILIUM                           /00498201/ [Concomitant]
  3. IBUPROFEN [Concomitant]
     Dosage: 300 MG, PRN
     Route: 048
  4. DEXAMETHASONE [Concomitant]
  5. PANTOPRAZOLE [Concomitant]
  6. OMEPRAZOLE [Concomitant]
  7. NEULASTA [Suspect]
     Indication: CHEMOTHERAPY
     Dosage: 6 MG, Q3WK
     Route: 058
     Dates: start: 20110622, end: 20110802
  8. TAXOL [Concomitant]
     Indication: ADJUVANT THERAPY
     Dosage: UNK
     Route: 042
     Dates: end: 20110801

REACTIONS (5)
  - THROAT TIGHTNESS [None]
  - BONE PAIN [None]
  - DYSPNOEA [None]
  - ELECTROCARDIOGRAM T WAVE ABNORMAL [None]
  - CHEST DISCOMFORT [None]
